FAERS Safety Report 10951143 (Version 2)
Quarter: 2015Q2

REPORT INFORMATION
  Report Type: Spontaneous
  Country: NL (occurrence: NL)
  Receive Date: 20150324
  Receipt Date: 20150421
  Transmission Date: 20150821
  Serious: Yes (Hospitalization, Other)
  Sender: FDA-Public Use
  Company Number: NL-GILEAD-2015-0143274

PATIENT
  Age: 46 Year
  Sex: Female
  Weight: 73 kg

DRUGS (1)
  1. ZYDELIG [Suspect]
     Active Substance: IDELALISIB
     Indication: B-CELL LYMPHOMA
     Dosage: 150 MG, BID
     Route: 048
     Dates: start: 20150206, end: 20150310

REACTIONS (9)
  - Campylobacter gastroenteritis [Recovered/Resolved]
  - Colitis [Unknown]
  - Diarrhoea [Recovered/Resolved]
  - Haematochezia [Unknown]
  - Lymphadenopathy [Not Recovered/Not Resolved]
  - Malabsorption [Unknown]
  - Hypokalaemia [Unknown]
  - Cough [Unknown]
  - Dehydration [Unknown]

NARRATIVE: CASE EVENT DATE: 201503
